FAERS Safety Report 4578859-7 (Version None)
Quarter: 2005Q1

REPORT INFORMATION
  Report Type: 
  Country: None (occurrence: None)
  Receive Date: 20050211
  Receipt Date: 20050128
  Transmission Date: 20050727
  Serious: Yes (Death, Hospitalization, Other)
  Sender: FDA-Public Use
  Company Number: NSADSS2000003078

PATIENT
  Age: 47 Year
  Sex: Male
  Weight: 64 kg

DRUGS (18)
  1. REMICADE [Suspect]
     Route: 041
     Dates: start: 20000908
  2. REMICADE [Suspect]
     Indication: BEHCET'S SYNDROME
     Route: 041
     Dates: start: 20000908
  3. SANDIUMMUN [Concomitant]
     Indication: BEHCET'S SYNDROME
  4. COLCHICINE [Concomitant]
     Indication: BEHCET'S SYNDROME
  5. RINDERON [Concomitant]
     Indication: BEHCET'S SYNDROME
  6. DECADRON [Concomitant]
     Indication: BEHCET'S SYNDROME
  7. MYDRIN P [Concomitant]
  8. MYDRIN P [Concomitant]
     Indication: BEHCET'S SYNDROME
  9. BUFFERIN [Concomitant]
  10. BUFFERIN [Concomitant]
  11. BUFFERIN [Concomitant]
     Indication: BEHCET'S SYNDROME
  12. XALATAN [Concomitant]
     Indication: BEHCET'S SYNDROME
  13. TIMOPTIC [Concomitant]
     Indication: BEHCET'S SYNDROME
  14. TRUSOPT [Concomitant]
     Indication: BEHCET'S SYNDROME
  15. DIAMOX [Concomitant]
     Indication: DRUG USE FOR UNKNOWN INDICATION
  16. DIAMOX [Concomitant]
  17. THIENAM [Concomitant]
  18. THIENAM [Concomitant]

REACTIONS (36)
  - ACUTE TONSILLITIS [None]
  - ALANINE AMINOTRANSFERASE INCREASED [None]
  - ANAEMIA [None]
  - APALLIC SYNDROME [None]
  - ASPARTATE AMINOTRANSFERASE INCREASED [None]
  - BEHCET'S SYNDROME [None]
  - BLOOD CHLORIDE DECREASED [None]
  - BLOOD LACTATE DEHYDROGENASE INCREASED [None]
  - BLOOD OSMOLARITY DECREASED [None]
  - BLOOD PRESSURE DECREASED [None]
  - BLOOD SODIUM DECREASED [None]
  - CANDIDIASIS [None]
  - CEREBRAL INFARCTION [None]
  - COUGH [None]
  - DEATH [None]
  - DECUBITUS ULCER [None]
  - DIARRHOEA [None]
  - DIZZINESS [None]
  - DYSURIA [None]
  - ELECTROLYTE IMBALANCE [None]
  - FUNGAL INFECTION [None]
  - GAMMA-GLUTAMYLTRANSFERASE INCREASED [None]
  - HEADACHE [None]
  - HYDROCEPHALUS [None]
  - INAPPROPRIATE ANTIDIURETIC HORMONE SECRETION [None]
  - LIVER DISORDER [None]
  - MENINGITIS TUBERCULOUS [None]
  - NAUSEA [None]
  - PERITONSILLAR ABSCESS [None]
  - PNEUMOTHORAX [None]
  - PULMONARY TUBERCULOSIS [None]
  - RENAL FAILURE [None]
  - STAPHYLOCOCCAL INFECTION [None]
  - TUBERCULOSIS [None]
  - UPPER GASTROINTESTINAL HAEMORRHAGE [None]
  - VISUAL DISTURBANCE [None]
